FAERS Safety Report 19663973 (Version 1)
Quarter: 2021Q3

REPORT INFORMATION
  Report Type: Spontaneous
  Country: AU (occurrence: AU)
  Receive Date: 20210806
  Receipt Date: 20210806
  Transmission Date: 20211014
  Serious: Yes (Death, Other)
  Sender: FDA-Public Use
  Company Number: AU-SUN PHARMACEUTICAL INDUSTRIES LTD-2021RR-306830

PATIENT
  Age: 65 Year
  Sex: Male

DRUGS (7)
  1. MEROPENEM. [Suspect]
     Active Substance: MEROPENEM
     Indication: ANTIBIOTIC THERAPY
     Dosage: UNK
     Route: 042
  2. METHYLPREDNISOLONE. [Suspect]
     Active Substance: METHYLPREDNISOLONE
     Indication: METASTATIC SQUAMOUS CELL CARCINOMA
     Dosage: 1 GRAM, UNK
     Route: 042
  3. AZITHROMYCIN ANHYDROUS. [Suspect]
     Active Substance: AZITHROMYCIN ANHYDROUS
     Indication: ANTIBIOTIC THERAPY
     Dosage: UNK
     Route: 042
  4. CEFEPIME [Suspect]
     Active Substance: CEFEPIME HYDROCHLORIDE
     Indication: ANTIBIOTIC THERAPY
     Dosage: UNK
     Route: 042
  5. TRIMETROPRIM/SULFAMETHAZOLE [Suspect]
     Active Substance: SULFAMETHOXAZOLE\TRIMETHOPRIM
     Indication: ANTIBIOTIC THERAPY
     Dosage: UNK
     Route: 042
  6. GEMCITABINE. [Suspect]
     Active Substance: GEMCITABINE
     Indication: METASTATIC SQUAMOUS CELL CARCINOMA
     Dosage: UNK
     Route: 065
  7. CARBOPLATIN. [Suspect]
     Active Substance: CARBOPLATIN
     Indication: METASTATIC SQUAMOUS CELL CARCINOMA
     Dosage: UNK
     Route: 065

REACTIONS (3)
  - Disease progression [Unknown]
  - Pneumonitis [Fatal]
  - Therapeutic product effect incomplete [Unknown]
